FAERS Safety Report 6983945-8 (Version None)
Quarter: 2010Q3

REPORT INFORMATION
  Report Type: 
  Country: None (occurrence: None)
  Receive Date: 20100914
  Receipt Date: 20090430
  Transmission Date: 20110219
  Serious: No
  Sender: FDA-Public Use
  Company Number: US-WYE-H08760209

PATIENT
  Age: 59 Year
  Sex: Female
  Weight: 79.45 kg

DRUGS (8)
  1. ADVIL PM [Suspect]
     Indication: HEADACHE
     Dosage: 2 CAPLETS X 1
     Route: 048
     Dates: start: 20090329, end: 20090329
  2. ADVIL PM [Suspect]
     Indication: INSOMNIA
  3. SYNTHROID [Concomitant]
  4. ADVIL LIQUI-GELS [Concomitant]
  5. LIPITOR [Concomitant]
  6. LORAZEPAM [Concomitant]
  7. PREMARIN [Concomitant]
  8. OXYBUTYNIN [Concomitant]

REACTIONS (3)
  - AGITATION [None]
  - DRUG EFFECT DECREASED [None]
  - RESTLESS LEGS SYNDROME [None]
